FAERS Safety Report 7420153-0 (Version None)
Quarter: 2011Q2

REPORT INFORMATION
  Report Type: 
  Country: None (occurrence: None)
  Receive Date: 20110413
  Receipt Date: 20110413
  Transmission Date: 20111010
  Serious: Yes (Life-Threatening)
  Sender: FDA-Public Use
  Company Number: None

PATIENT
  Sex: Female
  Weight: 74.8435 kg

DRUGS (4)
  1. AMBIEN [Suspect]
     Indication: INSOMNIA
     Dosage: AS NEEDED AT NIGHT OFF AND ON W/NO PROBLEMS;  DANGEROUS SIDE EFFECTS
     Dates: start: 19860702, end: 19960526
  2. AMBIEN [Suspect]
     Indication: POOR QUALITY SLEEP
     Dosage: AS NEEDED AT NIGHT OFF AND ON W/NO PROBLEMS;  DANGEROUS SIDE EFFECTS
     Dates: start: 19860702, end: 19960526
  3. AMBIEN [Suspect]
     Indication: INSOMNIA
     Dosage: AS NEEDED AT NIGHT OFF AND ON W/NO PROBLEMS;  DANGEROUS SIDE EFFECTS
     Dates: start: 20050711, end: 20050915
  4. AMBIEN [Suspect]
     Indication: POOR QUALITY SLEEP
     Dosage: AS NEEDED AT NIGHT OFF AND ON W/NO PROBLEMS;  DANGEROUS SIDE EFFECTS
     Dates: start: 20050711, end: 20050915

REACTIONS (2)
  - FALL [None]
  - HEAD INJURY [None]
